FAERS Safety Report 7945765-7 (Version None)
Quarter: 2011Q4

REPORT INFORMATION
  Report Type: 
  Country: None (occurrence: None)
  Receive Date: 20111129
  Receipt Date: 20110517
  Transmission Date: 20120403
  Serious: No
  Sender: FDA-Public Use
  Company Number: US-GLAXOSMITHKLINE-A0927602A

PATIENT
  Age: 88 Year
  Sex: Female

DRUGS (2)
  1. LANOXIN [Suspect]
     Indication: PRODUCT USED FOR UNKNOWN INDICATION
     Dosage: .25MG PER DAY
     Route: 048
     Dates: start: 19910101
  2. SYNTHROID [Concomitant]

REACTIONS (4)
  - COLD SWEAT [None]
  - ABDOMINAL PAIN UPPER [None]
  - PRODUCT QUALITY ISSUE [None]
  - NAUSEA [None]
